FAERS Safety Report 7073382-2 (Version None)
Quarter: 2010Q4

REPORT INFORMATION
  Report Type: 
  Country: None (occurrence: None)
  Receive Date: 20101029
  Receipt Date: 20100609
  Transmission Date: 20110411
  Serious: No
  Sender: FDA-Public Use
  Company Number: A0864019A

PATIENT
  Age: 54 Year
  Sex: Female

DRUGS (5)
  1. ADVAIR DISKUS 100/50 [Suspect]
     Indication: ASTHMA
     Dosage: 2PUFF TWICE PER DAY
     Route: 055
     Dates: start: 20081201
  2. PREDNISONE [Concomitant]
  3. SINGULAIR [Concomitant]
  4. XOPENEX [Concomitant]
  5. DIOVAN [Concomitant]

REACTIONS (1)
  - COUGH [None]
